FAERS Safety Report 20146947 (Version 1)
Quarter: 2021Q4

REPORT INFORMATION
  Report Type: Spontaneous
  Country: US (occurrence: US)
  Receive Date: 20211203
  Receipt Date: 20211203
  Transmission Date: 20220303
  Serious: No
  Sender: FDA-Public Use
  Company Number: US-TAKEDA-2021TUS076574

PATIENT
  Age: 62 Year
  Sex: Female
  Weight: 59 kg

DRUGS (2)
  1. LIALDA [Suspect]
     Active Substance: MESALAMINE
     Indication: Colitis ulcerative
     Dosage: 4 DOSAGE FORM, QD
     Route: 065
     Dates: start: 2016
  2. ENTYVIO [Suspect]
     Active Substance: VEDOLIZUMAB
     Indication: Colitis ulcerative
     Dosage: UNK, Q8WEEKS
     Route: 042
     Dates: start: 20210827

REACTIONS (1)
  - Alopecia [Unknown]

NARRATIVE: CASE EVENT DATE: 20210901
